FAERS Safety Report 14186703 (Version 1)
Quarter: 2017Q4

REPORT INFORMATION
  Report Type: Spontaneous
  Country: US (occurrence: US)
  Receive Date: 20171114
  Receipt Date: 20171114
  Transmission Date: 20180321
  Serious: Yes (Hospitalization, Other)
  Sender: FDA-Public Use
  Company Number: US-009507513-1103USA02677

PATIENT
  Sex: Female
  Weight: 73.94 kg

DRUGS (6)
  1. FOSAMAX [Suspect]
     Active Substance: ALENDRONATE SODIUM
     Indication: OSTEOPOROSIS
     Dosage: 70 MG, QW
     Route: 048
     Dates: start: 1995, end: 20100316
  2. FOSAMAX [Suspect]
     Active Substance: ALENDRONATE SODIUM
     Indication: OSTEOPENIA
  3. HORMONES (UNSPECIFIED) [Concomitant]
     Active Substance: UNSPECIFIED INGREDIENT
     Dates: start: 1990, end: 1995
  4. STROVITE [Concomitant]
     Dosage: 1 DF, QD
     Route: 048
  5. SELECTIVE ESTROGEN RECEPTOR MODULATOR (UNSPECIFIED) [Concomitant]
     Dates: start: 1995, end: 2001
  6. FOSAMAX [Suspect]
     Active Substance: ALENDRONATE SODIUM
     Route: 048
     Dates: start: 20081221, end: 20090922

REACTIONS (47)
  - Gait disturbance [Unknown]
  - Vitamin D decreased [Recovered/Resolved]
  - Pain in extremity [Unknown]
  - Hypoaesthesia [Unknown]
  - Sinusitis [Unknown]
  - Fall [Unknown]
  - Irritable bowel syndrome [Unknown]
  - Pleural effusion [Unknown]
  - Pneumonia [Unknown]
  - Depression [Unknown]
  - Organising pneumonia [Unknown]
  - Pulmonary alveolar haemorrhage [Unknown]
  - Anaemia postoperative [Unknown]
  - Pulmonary mass [Unknown]
  - Sinusitis [Unknown]
  - Metastatic neoplasm [Unknown]
  - Diabetes mellitus [Unknown]
  - Coronary artery disease [Unknown]
  - Vertigo [Unknown]
  - Pain in extremity [Unknown]
  - Sleep apnoea syndrome [Unknown]
  - Headache [Unknown]
  - Fatigue [Unknown]
  - Pyrexia [Unknown]
  - Gastrooesophageal reflux disease [Unknown]
  - Labyrinthitis [Unknown]
  - Tendonitis [Unknown]
  - Bursitis [Unknown]
  - Tendonitis [Unknown]
  - Tooth disorder [Not Recovered/Not Resolved]
  - Anxiety [Unknown]
  - Pneumonia [Unknown]
  - Hypercholesterolaemia [Unknown]
  - Impaired healing [Unknown]
  - Renal cyst [Unknown]
  - Pneumonia [Unknown]
  - Weight increased [Unknown]
  - Swelling [Unknown]
  - Lung disorder [Unknown]
  - Femur fracture [Unknown]
  - Low turnover osteopathy [Unknown]
  - Foot fracture [Unknown]
  - Hypertension [Unknown]
  - Dyspnoea exertional [Unknown]
  - Hyperlipidaemia [Unknown]
  - Obesity [Unknown]
  - Urinary incontinence [Unknown]

NARRATIVE: CASE EVENT DATE: 1995
